FAERS Safety Report 11688096 (Version 6)
Quarter: 2015Q4

REPORT INFORMATION
  Report Type: Spontaneous
  Country: JP (occurrence: JP)
  Receive Date: 20151030
  Receipt Date: 20151222
  Transmission Date: 20160304
  Serious: Yes (Hospitalization)
  Sender: FDA-Public Use
  Company Number: PHHY2015JP141368

PATIENT
  Age: 59 Year
  Sex: Female

DRUGS (13)
  1. SANDIMMUN INFUSION [Suspect]
     Active Substance: CYCLOSPORINE
     Indication: PARANEOPLASTIC PEMPHIGUS
     Dosage: 1.5 MG/KG, UNK
     Route: 042
  2. PREDNISOLONE. [Suspect]
     Active Substance: PREDNISOLONE
     Indication: PARANEOPLASTIC PEMPHIGUS
     Dosage: 100 MG, UNK
     Route: 065
  3. IMMUNOGLOBULIN I.V [Suspect]
     Active Substance: HUMAN IMMUNOGLOBULIN G
     Indication: PARANEOPLASTIC PEMPHIGUS
     Dosage: 400 MG/KG, QD, (ONCE A MONTH FOR THREE CYCLES)
     Route: 042
  4. PREDNISOLONE. [Suspect]
     Active Substance: PREDNISOLONE
     Indication: B-CELL LYMPHOMA
     Dosage: 0.1 MG/KG, QD
     Route: 048
  5. PREDNISOLONE. [Suspect]
     Active Substance: PREDNISOLONE
     Dosage: UNK
     Route: 065
  6. VINCRISTINE [Concomitant]
     Active Substance: VINCRISTINE
     Indication: B-CELL LYMPHOMA
     Dosage: TWO COURSES
     Route: 065
  7. SANDIMMUN INFUSION [Suspect]
     Active Substance: CYCLOSPORINE
     Indication: IMMUNOSUPPRESSION
     Dosage: 2.5 MG/KG, QD
     Route: 042
  8. CYCLOPHOSPHAMIDE. [Concomitant]
     Active Substance: CYCLOPHOSPHAMIDE
     Indication: B-CELL LYMPHOMA
     Dosage: TWO COURSES
     Route: 065
  9. DOXORUBICIN [Concomitant]
     Active Substance: DOXORUBICIN
     Indication: B-CELL LYMPHOMA
     Dosage: TWO COURSES
     Route: 065
  10. METHYLPREDNISOLONE. [Suspect]
     Active Substance: METHYLPREDNISOLONE
     Dosage: 500 MG, UNK (HALF PULSE THERAPY)
     Route: 065
  11. RITUXIMAB [Suspect]
     Active Substance: RITUXIMAB
     Indication: OBLITERATIVE BRONCHIOLITIS
  12. RITUXIMAB [Suspect]
     Active Substance: RITUXIMAB
     Indication: PARANEOPLASTIC PEMPHIGUS
     Dosage: 375 MG/M2, (ONCE EVERY 3 WEEKS FOR FIVE CYCLES)
     Route: 065
  13. METHYLPREDNISOLONE. [Suspect]
     Active Substance: METHYLPREDNISOLONE
     Indication: PARANEOPLASTIC PEMPHIGUS
     Dosage: 1000 MG, UNK
     Route: 065

REACTIONS (5)
  - Cytomegalovirus infection [Unknown]
  - Immunosuppressant drug level increased [Unknown]
  - Fungal infection [Unknown]
  - Drug ineffective [Unknown]
  - Bacterial infection [Unknown]
